FAERS Safety Report 6571653-7 (Version None)
Quarter: 2010Q1

REPORT INFORMATION
  Report Type: 
  Country: None (occurrence: None)
  Receive Date: 20100205
  Receipt Date: 20100126
  Transmission Date: 20100710
  Serious: Yes (Other)
  Sender: FDA-Public Use
  Company Number: PHHY2010GB05480

PATIENT
  Sex: Female

DRUGS (5)
  1. CLOZARIL [Suspect]
     Indication: SCHIZOPHRENIA
     Dosage: UNK
     Dates: start: 20100114
  2. OLANZAPINE [Concomitant]
  3. VALPROATE SODIUM [Concomitant]
  4. LAMOTRIGINE [Concomitant]
  5. FRUSEMIDE [Concomitant]

REACTIONS (6)
  - CARDIAC MURMUR [None]
  - CYST [None]
  - ELECTROCARDIOGRAM QT PROLONGED [None]
  - MALAISE [None]
  - SKIN CANCER [None]
  - SKIN LESION [None]
